FAERS Safety Report 4859900-0 (Version None)
Quarter: 2005Q4

REPORT INFORMATION
  Report Type: 
  Country: None (occurrence: None)
  Receive Date: 20051219
  Receipt Date: 20051121
  Transmission Date: 20060501
  Serious: Yes (Life-Threatening, Hospitalization)
  Sender: FDA-Public Use
  Company Number: 2005AP06048

PATIENT
  Age: 8284 Day
  Sex: Male
  Weight: 52 kg

DRUGS (10)
  1. DIPRIVAN [Suspect]
     Indication: SEDATION
     Dosage: 5ML/HR
     Route: 042
     Dates: start: 20051017
  2. DIPRIVAN [Suspect]
     Route: 042
     Dates: start: 20051017
  3. DIPRIVAN [Suspect]
     Route: 042
     Dates: start: 20051017
  4. DIPRIVAN [Suspect]
     Route: 042
     Dates: start: 20051017
  5. DIPRIVAN [Suspect]
     Route: 042
     Dates: start: 20051017
  6. DIPRIVAN [Suspect]
     Route: 042
     Dates: start: 20051018, end: 20051018
  7. CONTOMIN [Suspect]
     Indication: SEDATION
     Route: 030
     Dates: start: 20051012, end: 20051016
  8. CONTOMIN [Suspect]
     Dates: start: 20051017
  9. PRIMPERAN INJ [Suspect]
     Dates: start: 20051017
  10. MIOBLOCK [Suspect]
     Dates: start: 20051017

REACTIONS (3)
  - DISSEMINATED INTRAVASCULAR COAGULATION [None]
  - HYPERTHERMIA MALIGNANT [None]
  - PLATELET COUNT DECREASED [None]
